FAERS Safety Report 15137427 (Version 1)
Quarter: 2018Q3

REPORT INFORMATION
  Report Type: Spontaneous
  Country: US (occurrence: US)
  Receive Date: 20180712
  Receipt Date: 20180712
  Transmission Date: 20181010
  Serious: No
  Sender: FDA-Public Use
  Company Number: US-NOVOPROD-607190

PATIENT
  Age: 68 Year
  Sex: Female

DRUGS (1)
  1. TRESIBA FLEXTOUCH U200 [Suspect]
     Active Substance: INSULIN DEGLUDEC
     Indication: DIABETES MELLITUS
     Dosage: 23 U, UNK
     Route: 058

REACTIONS (2)
  - Drug prescribing error [Not Recovered/Not Resolved]
  - Blood glucose increased [Not Recovered/Not Resolved]
